FAERS Safety Report 22066254 (Version 3)
Quarter: 2023Q1

REPORT INFORMATION
  Report Type: Spontaneous
  Country: US (occurrence: US)
  Receive Date: 20230306
  Receipt Date: 20230315
  Transmission Date: 20230418
  Serious: Yes (Death, Hospitalization, Other)
  Sender: FDA-Public Use
  Company Number: US-GILEAD-2023-0618787

PATIENT
  Age: 53 Year
  Sex: Female

DRUGS (1)
  1. TECARTUS [Suspect]
     Active Substance: BREXUCABTAGENE AUTOLEUCEL
     Indication: Mantle cell lymphoma
     Dosage: 2 X 10^6/KG
     Route: 065
     Dates: start: 20230221, end: 20230221

REACTIONS (3)
  - Death [Fatal]
  - Cytokine release syndrome [Recovered/Resolved]
  - Blood culture positive [Unknown]

NARRATIVE: CASE EVENT DATE: 20230221
